FAERS Safety Report 16358909 (Version 3)
Quarter: 2019Q3

REPORT INFORMATION
  Report Type: Spontaneous
  Country: MX (occurrence: MX)
  Receive Date: 20190527
  Receipt Date: 20190816
  Transmission Date: 20191004
  Serious: Yes (Death)
  Sender: FDA-Public Use
  Company Number: MX-B.I. PHARMACEUTICALS,INC./RIDGEFIELD-2019-BI-023961

PATIENT
  Age: 65 Year
  Sex: Male
  Weight: 83 kg

DRUGS (10)
  1. REGENESIS [Concomitant]
     Indication: PRODUCT USED FOR UNKNOWN INDICATION
     Route: 065
  2. ATORVASTATIN [Concomitant]
     Active Substance: ATORVASTATIN
     Indication: PRODUCT USED FOR UNKNOWN INDICATION
     Route: 065
  3. METOPROLOL. [Concomitant]
     Active Substance: METOPROLOL
     Indication: PRODUCT USED FOR UNKNOWN INDICATION
     Dosage: DOSE :100
     Route: 065
  4. TRAPAZYD [Concomitant]
     Indication: PRODUCT USED FOR UNKNOWN INDICATION
     Route: 065
  5. METFORMIN [Concomitant]
     Active Substance: METFORMIN HYDROCHLORIDE
     Indication: CARDIOMETABOLIC SYNDROME
     Dosage: DOSE 850,
     Route: 065
  6. MEMANTINA [Concomitant]
     Active Substance: MEMANTINE HYDROCHLORIDE
     Indication: PRODUCT USED FOR UNKNOWN INDICATION
     Route: 065
  7. PRADAXAR [Suspect]
     Active Substance: DABIGATRAN ETEXILATE MESYLATE
     Indication: PROTEIN S DEFICIENCY
     Route: 065
  8. PRADAXAR [Suspect]
     Active Substance: DABIGATRAN ETEXILATE MESYLATE
     Route: 065
  9. ASPIRIN PROTECT [Concomitant]
     Active Substance: ASPIRIN
     Indication: PRODUCT USED FOR UNKNOWN INDICATION
     Route: 065
  10. CINARIZINA [Concomitant]
     Indication: DIZZINESS
     Route: 065

REACTIONS (11)
  - Cerebral ischaemia [Fatal]
  - Dizziness [Unknown]
  - Discomfort [Unknown]
  - Headache [Unknown]
  - Hypertension [Fatal]
  - Decreased appetite [Unknown]
  - Cerebrovascular accident [Fatal]
  - Diarrhoea [Unknown]
  - Amnesia [Unknown]
  - Hyperthermia [Unknown]
  - Weight decreased [Unknown]
